FAERS Safety Report 18299925 (Version 5)
Quarter: 2021Q1

REPORT INFORMATION
  Report Type: Report from Study
  Country: None (occurrence: AT)
  Receive Date: 20200922
  Receipt Date: 20210331
  Transmission Date: 20210419
  Serious: Yes (Life-Threatening, Hospitalization, Other)
  Sender: FDA-Public Use
  Company Number: AT-ABBVIE-20K-009-3576543-00

PATIENT
  Age: 48 Year
  Sex: Female
  Weight: 80 kg

DRUGS (3)
  1. SKYRIZI [Suspect]
     Active Substance: RISANKIZUMAB-RZAA
     Indication: PSORIASIS
     Dosage: EVERY 3 MONTHS
     Route: 058
     Dates: start: 20191014, end: 20200918
  2. GABAPENTIN. [Concomitant]
     Active Substance: GABAPENTIN
     Indication: CEREBROVASCULAR ACCIDENT
     Route: 048
     Dates: start: 20201007
  3. IXEKIZUMAB [Concomitant]
     Active Substance: IXEKIZUMAB
     Indication: PRODUCT USED FOR UNKNOWN INDICATION
     Dosage: HIGHEST MAINTENANCE DOSE: 80 MG PER MONTH
     Dates: start: 20201201

REACTIONS (25)
  - Speech disorder [Recovered/Resolved with Sequelae]
  - Arterial occlusive disease [Unknown]
  - Bradykinesia [Recovering/Resolving]
  - Cerebral infarction [Recovering/Resolving]
  - Therapeutic product effect decreased [Unknown]
  - Aphasia [Recovering/Resolving]
  - Facial paralysis [Recovering/Resolving]
  - Alopecia areata [Not Recovered/Not Resolved]
  - Hemiparesis [Recovering/Resolving]
  - Disorientation [Recovering/Resolving]
  - Agitation [Recovered/Resolved with Sequelae]
  - Upper motor neurone lesion [Recovering/Resolving]
  - Alopecia [Not Recovered/Not Resolved]
  - Vomiting [Recovering/Resolving]
  - Dizziness [Recovered/Resolved with Sequelae]
  - Cerebral artery occlusion [Recovering/Resolving]
  - Vitamin D decreased [Unknown]
  - Embolism arterial [Recovering/Resolving]
  - Subarachnoid haemorrhage [Recovering/Resolving]
  - Confusional state [Recovering/Resolving]
  - Carotid artery dissection [Recovering/Resolving]
  - Nausea [Unknown]
  - Cerebrovascular accident [Recovered/Resolved with Sequelae]
  - Carotid artery dissection [Unknown]
  - Lung disorder [Unknown]

NARRATIVE: CASE EVENT DATE: 20200918
